FAERS Safety Report 23345303 (Version 1)
Quarter: 2023Q4

REPORT INFORMATION
  Report Type: Spontaneous
  Country: FR (occurrence: FR)
  Receive Date: 20231228
  Receipt Date: 20231228
  Transmission Date: 20240110
  Serious: Yes (Other)
  Sender: FDA-Public Use
  Company Number: FR-ORPHANEU-2023009170

PATIENT

DRUGS (3)
  1. OSILODROSTAT [Suspect]
     Active Substance: OSILODROSTAT
     Indication: Cushing^s syndrome
     Dosage: 10 MG/DAILY (FOR TWO DAYS)
  2. OSILODROSTAT [Suspect]
     Active Substance: OSILODROSTAT
     Dosage: 20MG/DAILY
  3. OSILODROSTAT [Suspect]
     Active Substance: OSILODROSTAT
     Dosage: GRADUALLY REDUCED TO 3MG/DAILY

REACTIONS (4)
  - Sepsis [Unknown]
  - Adrenal insufficiency [Recovered/Resolved]
  - Adrenal insufficiency [Recovered/Resolved]
  - Therapeutic product effect prolonged [Recovered/Resolved]
